FAERS Safety Report 6156940-9 (Version None)
Quarter: 2009Q2

REPORT INFORMATION
  Report Type: 
  Country: None (occurrence: None)
  Receive Date: 20090416
  Receipt Date: 20090406
  Transmission Date: 20091009
  Serious: Yes (Hospitalization)
  Sender: FDA-Public Use
  Company Number: B0564664A

PATIENT
  Sex: Female
  Weight: 58 kg

DRUGS (11)
  1. ARIXTRA [Suspect]
     Indication: PULMONARY EMBOLISM
     Dosage: .6ML PER DAY
     Route: 058
     Dates: start: 20081125, end: 20081128
  2. PREVISCAN [Suspect]
     Indication: PULMONARY EMBOLISM
     Route: 048
     Dates: start: 20081126
  3. LASIX [Suspect]
     Route: 048
     Dates: start: 20081114
  4. NEBIVOLOL [Concomitant]
     Route: 065
  5. APROVEL [Concomitant]
     Route: 065
  6. LEVOTHYROXINE SODIUM [Concomitant]
     Route: 065
  7. GLUCOPHAGE [Concomitant]
     Route: 048
  8. AMARYL [Concomitant]
     Route: 048
  9. NOVONORM [Concomitant]
     Route: 065
  10. PYOSTACINE [Concomitant]
     Indication: PRODUCTIVE COUGH
     Route: 065
     Dates: start: 20081101
  11. AMOXICILLIN [Concomitant]
     Dosage: 1G THREE TIMES PER DAY
     Route: 065
     Dates: start: 20081101

REACTIONS (1)
  - ACUTE GENERALISED EXANTHEMATOUS PUSTULOSIS [None]
